FAERS Safety Report 8008926-7 (Version None)
Quarter: 2011Q4

REPORT INFORMATION
  Report Type: 
  Country: None (occurrence: None)
  Receive Date: 20111221
  Receipt Date: 20110809
  Transmission Date: 20120403
  Serious: No
  Sender: FDA-Public Use
  Company Number: 2011-US-0095

PATIENT
  Age: 46 Year
  Sex: Female

DRUGS (2)
  1. ABSTRAL [Suspect]
     Indication: BREAKTHROUGH PAIN
     Dosage: 100MCG AND 200MCG
  2. ABSTRAL [Suspect]
     Indication: BREAKTHROUGH PAIN
     Dosage: 100MCG AND 200MCG

REACTIONS (2)
  - INTENTIONAL DRUG MISUSE [None]
  - NO ADVERSE EVENT [None]
